FAERS Safety Report 8852546 (Version 1)
Quarter: 2012Q4

REPORT INFORMATION
  Report Type: 
  Country: ES (occurrence: ES)
  Receive Date: 20121022
  Receipt Date: 20121022
  Transmission Date: 20130627
  Serious: Yes (Hospitalization, Other)
  Sender: FDA-Public Use
  Company Number: PHHY2012ES086020

PATIENT
  Age: 38 Year
  Sex: Female

DRUGS (2)
  1. GILENYA [Suspect]
     Indication: RELAPSING-REMITTING MULTIPLE SCLEROSIS
     Dosage: 0.5 mg, QD
     Route: 048
     Dates: start: 20120601
  2. TRYPTIZOL [Concomitant]
     Indication: HEADACHE

REACTIONS (7)
  - Anal abscess [Unknown]
  - Rectal abscess [Unknown]
  - Genital herpes [Recovered/Resolved with Sequelae]
  - Ankle fracture [Unknown]
  - Anal ulcer [Unknown]
  - Proctalgia [Unknown]
  - Headache [Unknown]
